FAERS Safety Report 5822582-5 (Version None)
Quarter: 2008Q3

REPORT INFORMATION
  Report Type: 
  Country: None (occurrence: None)
  Receive Date: 20080725
  Receipt Date: 20080716
  Transmission Date: 20090109
  Serious: Yes (Other)
  Sender: FDA-Public Use
  Company Number: US-JNJFOC-20080704688

PATIENT
  Sex: Female

DRUGS (4)
  1. CONCERTA [Suspect]
     Route: 048
     Dates: start: 20080501
  2. CONCERTA [Suspect]
     Route: 048
     Dates: start: 20080501
  3. CONCERTA [Suspect]
     Indication: ATTENTION DEFICIT/HYPERACTIVITY DISORDER
     Route: 048
     Dates: start: 20080501
  4. CLONIDINE [Concomitant]
     Indication: INSOMNIA
     Route: 065

REACTIONS (2)
  - ATTENTION DEFICIT/HYPERACTIVITY DISORDER [None]
  - SUICIDAL IDEATION [None]
